FAERS Safety Report 5069868-2 (Version None)
Quarter: 2006Q3

REPORT INFORMATION
  Report Type: 
  Country: None (occurrence: None)
  Receive Date: 20060802
  Receipt Date: 20060802
  Transmission Date: 20061208
  Serious: Yes (Disabling)
  Sender: FDA-Public Use
  Company Number: None

PATIENT
  Age: 83 Year
  Sex: Female
  Weight: 47.6277 kg

DRUGS (2)
  1. ACTONEL [Suspect]
     Indication: OSTEONECROSIS
     Dosage: WEEKLY
     Dates: start: 20010101, end: 20060501
  2. LANOXIN [Concomitant]

REACTIONS (1)
  - OSTEONECROSIS [None]
